FAERS Safety Report 8417431-5 (Version None)
Quarter: 2012Q2

REPORT INFORMATION
  Report Type: 
  Country: None (occurrence: None)
  Receive Date: 20120606
  Receipt Date: 20120530
  Transmission Date: 20120825
  Serious: Yes (Other)
  Sender: FDA-Public Use
  Company Number: GB-JNJFOC-20120411443

PATIENT
  Sex: Male

DRUGS (5)
  1. MEBEVERINE [Concomitant]
     Indication: IRRITABLE BOWEL SYNDROME
     Route: 048
     Dates: start: 20060923
  2. DURAGESIC-100 [Suspect]
     Indication: PAIN
     Dosage: PRESCRIBED 12MCG AND 25MCG
     Route: 062
     Dates: start: 20110901
  3. NAPROXEN [Concomitant]
     Indication: PAIN
     Route: 048
     Dates: start: 20090821
  4. LANSOPRAZOLE [Concomitant]
     Indication: GASTROOESOPHAGEAL REFLUX DISEASE
     Route: 048
     Dates: start: 20101018
  5. ACETAMINOPHEN [Concomitant]
     Indication: PAIN
     Route: 048
     Dates: start: 20110314

REACTIONS (6)
  - DRUG ABUSE [None]
  - INCORRECT DRUG ADMINISTRATION DURATION [None]
  - HYPERHIDROSIS [None]
  - INAPPROPRIATE SCHEDULE OF DRUG ADMINISTRATION [None]
  - PRODUCT QUALITY ISSUE [None]
  - DRUG INEFFECTIVE [None]
